FAERS Safety Report 9353673 (Version 1)
Quarter: 2013Q2

REPORT INFORMATION
  Report Type: Spontaneous
  Country: US (occurrence: None)
  Receive Date: 20130617
  Receipt Date: 20130617
  Transmission Date: 20140414
  Serious: Yes (Life-Threatening)
  Sender: FDA-Public Use
  Company Number: None

PATIENT
  Age: 44 Year
  Sex: Female

DRUGS (1)
  1. MIRENA IUD [Suspect]

REACTIONS (5)
  - Device breakage [None]
  - Adverse event [None]
  - Osteoporosis [None]
  - Pelvic inflammatory disease [None]
  - Device dislocation [None]
